FAERS Safety Report 17744519 (Version 1)
Quarter: 2020Q2

REPORT INFORMATION
  Report Type: Spontaneous
  Country: CA (occurrence: CA)
  Receive Date: 20200505
  Receipt Date: 20200505
  Transmission Date: 20200714
  Serious: Yes (Congenital Anomaly)
  Sender: FDA-Public Use
  Company Number: NVSC2020CA113313

PATIENT
  Sex: Male

DRUGS (5)
  1. BIOTIN [Suspect]
     Active Substance: BIOTIN
     Indication: FOETAL EXPOSURE DURING PREGNANCY
     Dosage: UNK
     Route: 064
  2. VITAMIN B12 [Suspect]
     Active Substance: CYANOCOBALAMIN
     Indication: FOETAL EXPOSURE DURING PREGNANCY
     Dosage: UNK
     Route: 064
  3. IRON [Suspect]
     Active Substance: IRON
     Indication: FOETAL EXPOSURE DURING PREGNANCY
     Dosage: UNK
     Route: 064
  4. FAMOTIDINE. [Suspect]
     Active Substance: FAMOTIDINE
     Indication: FOETAL EXPOSURE DURING PREGNANCY
     Dosage: 40 MG, QD
     Route: 064
  5. PREPULSID [Suspect]
     Active Substance: CISAPRIDE
     Indication: FOETAL EXPOSURE DURING PREGNANCY
     Dosage: UNK
     Route: 065

REACTIONS (2)
  - Maternal exposure during pregnancy [Unknown]
  - Respiratory distress [Unknown]
